FAERS Safety Report 4821786-8 (Version None)
Quarter: 2005Q4

REPORT INFORMATION
  Report Type: 
  Country: None (occurrence: None)
  Receive Date: 20051107
  Receipt Date: 20051020
  Transmission Date: 20060501
  Serious: Yes (Death)
  Sender: FDA-Public Use
  Company Number: US-AMGEN-US155276

PATIENT
  Age: 14 Year
  Sex: Male

DRUGS (8)
  1. ENBREL [Suspect]
     Indication: IDIOPATHIC PNEUMONIA SYNDROME
     Route: 058
  2. SULFAMETHOXAZOLE + TRIMETHOPRIM [Concomitant]
  3. FLUCONAZOLE [Concomitant]
  4. NORFLOXACIN [Concomitant]
  5. ACYCLOVIR [Concomitant]
  6. GRANULOCYTE COLONY STIMULATING FACTOR [Concomitant]
  7. UNSPECIFIED MEDICATION [Concomitant]
  8. METHYLPREDNISOLONE [Concomitant]

REACTIONS (3)
  - CONDITION AGGRAVATED [None]
  - DISEASE PROGRESSION [None]
  - RENAL CELL CARCINOMA STAGE UNSPECIFIED [None]
